FAERS Safety Report 15867142 (Version 1)
Quarter: 2019Q1

REPORT INFORMATION
  Report Type: Spontaneous
  Country: US (occurrence: US)
  Receive Date: 20190102
  Receipt Date: 20190102
  Transmission Date: 20190417
  Serious: No
  Sender: FDA-Public Use
  Company Number: None

PATIENT
  Age: 56 Year
  Sex: Female

DRUGS (1)
  1. STELARA [Suspect]
     Active Substance: USTEKINUMAB
     Dates: start: 201811

REACTIONS (5)
  - Cough [None]
  - Oropharyngeal pain [None]
  - Anxiety [None]
  - Acne [None]
  - Feeling abnormal [None]

NARRATIVE: CASE EVENT DATE: 20190102
